FAERS Safety Report 8748662 (Version 2)
Quarter: 2012Q4

REPORT INFORMATION
  Report Type: Spontaneous
  Country: JP (occurrence: None)
  Receive Date: 20120808
  Receipt Date: 20120821
  Transmission Date: 20130627
  Serious: Yes (Death)
  Sender: FDA-Public Use
  Company Number: TPA2012A05212

PATIENT
  Age: 80 Year
  Sex: Male

DRUGS (8)
  1. FEBUXOSTAT [Suspect]
     Indication: GOUT
     Dosage: 10 MG (10 MG, 1 IN 1 D), PER ORAL
     Dates: start: 20120714, end: 20120721
  2. ACETAMINOPHEN [Concomitant]
  3. MAGLAX (MAGNESIUM OXIDE) [Concomitant]
  4. WARFARIN SODIUM [Concomitant]
  5. CALBLOCK (AZELNIDIPINE) [Concomitant]
  6. LUPAC (TORASEMIDE) [Concomitant]
  7. CARVEDILOL [Concomitant]
  8. VERAPAMIL HYDROCHLORIDE [Concomitant]

REACTIONS (2)
  - Hyperkalaemia [None]
  - Cardio-respiratory arrest [None]
